FAERS Safety Report 10456792 (Version 2)
Quarter: 2014Q3

REPORT INFORMATION
  Report Type: Spontaneous
  Country: JP (occurrence: JP)
  Receive Date: 20140916
  Receipt Date: 20140916
  Transmission Date: 20150326
  Serious: Yes (Other)
  Sender: FDA-Public Use
  Company Number: PHHY2014JP115957

PATIENT

DRUGS (1)
  1. EXJADE [Suspect]
     Active Substance: DEFERASIROX
     Indication: IRON OVERLOAD
     Dosage: UKN
     Route: 048
     Dates: end: 20140820

REACTIONS (4)
  - Mental disorder [Unknown]
  - Vomiting [Unknown]
  - Asthenia [Unknown]
  - Dysphagia [Unknown]
